FAERS Safety Report 6164118-8 (Version None)
Quarter: 2009Q2

REPORT INFORMATION
  Report Type: 
  Country: None (occurrence: None)
  Receive Date: 20090422
  Receipt Date: 20090417
  Transmission Date: 20091009
  Serious: Yes (Other)
  Sender: FDA-Public Use
  Company Number: B0570372A

PATIENT
  Sex: Male

DRUGS (2)
  1. VALTREX [Suspect]
     Route: 048
  2. CARBAMAZEPINE [Suspect]
     Route: 048

REACTIONS (1)
  - ERYTHEMA MULTIFORME [None]
